FAERS Safety Report 7285410-X (Version None)
Quarter: 2011Q1

REPORT INFORMATION
  Report Type: 
  Country: None (occurrence: None)
  Receive Date: 20110121
  Receipt Date: 20090713
  Transmission Date: 20110831
  Serious: No
  Sender: FDA-Public Use
  Company Number: AE 2009-084

PATIENT
  Age: 27 Year
  Sex: Male

DRUGS (1)
  1. FAZACLO ODT [Suspect]
     Indication: SCHIZOPHRENIA
     Dosage: 300 MG QAM PO
     Route: 048
     Dates: start: 20090101

REACTIONS (3)
  - DROOLING [None]
  - SEDATION [None]
  - EJACULATION DISORDER [None]
